FAERS Safety Report 15848540 (Version 2)
Quarter: 2019Q1

REPORT INFORMATION
  Report Type: Spontaneous
  Country: DE (occurrence: DE)
  Receive Date: 20190121
  Receipt Date: 20190204
  Transmission Date: 20190417
  Serious: Yes (Hospitalization)
  Sender: FDA-Public Use
  Company Number: DE-TEVA-2008R075166

PATIENT
  Sex: Female

DRUGS (9)
  1. TRAMADOL RETARD- UNK MAH [Suspect]
     Active Substance: TRAMADOL
     Dosage: OVERDOSE: MAXIMALLY 10 TABLETS
     Route: 048
  2. ZOLPIDEM- UNK MAH [Suspect]
     Active Substance: ZOLPIDEM\ZOLPIDEM TARTRATE
     Dosage: OVERDOSE: MAXIMALLY 20 TABLETS
     Route: 048
  3. TARGIN [Suspect]
     Active Substance: NALOXONE HYDROCHLORIDE\OXYCODONE HYDROCHLORIDE
     Route: 048
  4. CETIRIZINE- UNK MAH [Suspect]
     Active Substance: CETIRIZINE HYDROCHLORIDE
     Dosage: OVERDOSE: MAXIMALLY 7 TABLETS
     Route: 048
  5. DIAZEPAM- UNK MAH [Suspect]
     Active Substance: DIAZEPAM
     Dosage: OVERDOSE: MAXIMALLY 50 TABLETS
     Route: 048
  6. ATARAX [Suspect]
     Active Substance: HYDROXYZINE HYDROCHLORIDE
     Dosage: OVERDOSE: MAXIMALLY 20 TABLETS
     Route: 048
  7. DALMADORM [Suspect]
     Active Substance: FLURAZEPAM HYDROCHLORIDE
     Dosage: OVERDOSE: MAXIMALLY 20 TABLETS
     Route: 048
  8. EUTHYROX [Suspect]
     Active Substance: LEVOTHYROXINE SODIUM
     Dosage: UNKNOWN AMOUNT
     Route: 048
  9. NOVALGINE DROPS [Suspect]
     Active Substance: METAMIZOLE SODIUM
     Dosage: OVERDOSE: MAXIMALLY 20 ML
     Route: 048

REACTIONS (6)
  - Coma [Recovered/Resolved]
  - Cardiac arrest [Recovered/Resolved]
  - Bradypnoea [Recovered/Resolved]
  - Gastrointestinal hypomotility [Recovered/Resolved]
  - Suicide attempt [Recovered/Resolved]
  - Intentional overdose [Recovered/Resolved]
